FAERS Safety Report 8802849 (Version 1)
Quarter: 2012Q4

REPORT INFORMATION
  Report Type: 
  Country: US (occurrence: US)
  Receive Date: 20120921
  Receipt Date: 20120921
  Transmission Date: 20130627
  Serious: Yes (Other)
  Sender: FDA-Public Use
  Company Number: US-ASTRAZENECA-2012SE71702

PATIENT
  Age: 71 Year
  Sex: Female

DRUGS (3)
  1. ENTOCORT EC [Suspect]
     Route: 048
  2. NEXIUM [Suspect]
     Route: 048
  3. ACTONEL [Concomitant]

REACTIONS (3)
  - Intestinal haemorrhage [Unknown]
  - Crohn^s disease [Unknown]
  - Adverse drug reaction [Unknown]
